FAERS Safety Report 21323268 (Version 2)
Quarter: 2022Q4

REPORT INFORMATION
  Report Type: Spontaneous
  Country: US (occurrence: US)
  Receive Date: 20220912
  Receipt Date: 20221017
  Transmission Date: 20230113
  Serious: No
  Sender: FDA-Public Use
  Company Number: US-BEH-2022149290

PATIENT
  Age: 20 Year
  Sex: Male
  Weight: 71.202 kg

DRUGS (4)
  1. HIZENTRA [Suspect]
     Active Substance: HUMAN IMMUNOGLOBULIN G
     Indication: Immunodeficiency common variable
     Dosage: 9 GRAM, QW
     Route: 058
     Dates: start: 20220810, end: 20220826
  2. HIZENTRA [Suspect]
     Active Substance: HUMAN IMMUNOGLOBULIN G
     Dosage: 1 GRAM
     Route: 058
     Dates: start: 20220826
  3. HIZENTRA [Suspect]
     Active Substance: HUMAN IMMUNOGLOBULIN G
     Dosage: 4 GRAM
     Route: 058
     Dates: start: 20220826
  4. BENADRYL [Concomitant]
     Active Substance: DIPHENHYDRAMINE HYDROCHLORIDE
     Indication: Premedication
     Dosage: 50 MILLIGRAM, PRN
     Dates: start: 20220826, end: 20220826

REACTIONS (2)
  - Infusion site urticaria [Recovered/Resolved]
  - Infusion site urticaria [Recovered/Resolved]

NARRATIVE: CASE EVENT DATE: 20220826
